FAERS Safety Report 19427338 (Version 1)
Quarter: 2021Q2

REPORT INFORMATION
  Report Type: Spontaneous
  Country: US (occurrence: US)
  Receive Date: 20210616
  Receipt Date: 20210616
  Transmission Date: 20210717
  Serious: No
  Sender: FDA-Public Use
  Company Number: None

PATIENT
  Age: 67 Year
  Sex: Male

DRUGS (1)
  1. NEORAL [Suspect]
     Active Substance: CYCLOSPORINE
     Dosage: ?          OTHER DOSE:75;?
     Route: 048

REACTIONS (2)
  - Peripheral swelling [None]
  - Pyrexia [None]

NARRATIVE: CASE EVENT DATE: 20210611
